FAERS Safety Report 16088535 (Version 1)
Quarter: 2019Q1

REPORT INFORMATION
  Report Type: Spontaneous
  Country: US (occurrence: US)
  Receive Date: 20190215
  Receipt Date: 20190215
  Transmission Date: 20190418
  Serious: No
  Sender: FDA-Public Use
  Company Number: None

PATIENT
  Age: 20 Year
  Sex: Male

DRUGS (1)
  1. STELARA [Suspect]
     Active Substance: USTEKINUMAB
     Dates: start: 20181005

REACTIONS (2)
  - Product prescribing error [None]
  - Product dose omission [None]

NARRATIVE: CASE EVENT DATE: 20190214
